FAERS Safety Report 10683751 (Version 1)
Quarter: 2014Q4

REPORT INFORMATION
  Report Type: Spontaneous
  Country: US (occurrence: US)
  Receive Date: 20141230
  Receipt Date: 20141230
  Transmission Date: 20150529
  Serious: No
  Sender: FDA-Public Use
  Company Number: US-BAYER-2014-191116

PATIENT
  Age: 80 Year
  Sex: Male
  Weight: 118 kg

DRUGS (2)
  1. ALEVE [Suspect]
     Active Substance: NAPROXEN SODIUM
     Indication: ARTHRALGIA
     Dosage: 1 DF, BID
  2. ASPIRIN [ACETYLSALICYLIC ACID] [Concomitant]

REACTIONS (1)
  - Incorrect drug administration duration [None]
